FAERS Safety Report 6919415-2 (Version None)
Quarter: 2010Q3

REPORT INFORMATION
  Report Type: 
  Country: None (occurrence: None)
  Receive Date: 20100811
  Receipt Date: 20100805
  Transmission Date: 20110219
  Serious: Yes (Other)
  Sender: FDA-Public Use
  Company Number: A0875003A

PATIENT
  Sex: Female

DRUGS (1)
  1. ZYBAN [Suspect]
     Indication: SMOKING CESSATION THERAPY
     Dosage: 150MG TWICE PER DAY
     Route: 048
     Dates: start: 20100801, end: 20100801

REACTIONS (5)
  - ANXIETY [None]
  - CRYING [None]
  - DEPRESSION [None]
  - HALLUCINATION [None]
  - NIGHTMARE [None]
